FAERS Safety Report 6525790-3 (Version None)
Quarter: 2010Q1

REPORT INFORMATION
  Report Type: 
  Country: None (occurrence: None)
  Receive Date: 20100104
  Receipt Date: 20091229
  Transmission Date: 20100710
  Serious: Yes (Death)
  Sender: FDA-Public Use
  Company Number: A0836580A

PATIENT
  Age: 68 Year
  Sex: Male

DRUGS (1)
  1. PROMACTA [Suspect]
     Dosage: 50MG PER DAY
     Route: 048
     Dates: start: 20090726, end: 20090901

REACTIONS (2)
  - DEATH [None]
  - DRUG INEFFECTIVE [None]
